FAERS Safety Report 19408552 (Version 2)
Quarter: 2021Q2

REPORT INFORMATION
  Report Type: Spontaneous
  Country: NL (occurrence: NL)
  Receive Date: 20210612
  Receipt Date: 20210621
  Transmission Date: 20210717
  Serious: Yes (Other)
  Sender: FDA-Public Use
  Company Number: NL-TEVA-2021-NL-1920881

PATIENT
  Age: 27 Year
  Sex: Female
  Weight: 74 kg

DRUGS (4)
  1. DERMOVATE [Suspect]
     Active Substance: CLOBETASOL
     Indication: DERMATITIS ATOPIC
     Dosage: 1 DOSAGE FORMS DAILY;  1 FTU PER AFFECTED AREA (EXCEPT FACE), CLOBETASOL CREME  0,5MG/G / DERMOVATE
     Dates: start: 202006, end: 20201001
  2. LEVOCETIRIZINE TABLET FO 5MG / BRAND NAME NOT SPECIFIED [Concomitant]
     Active Substance: LEVOCETIRIZINE
     Dosage: 5 MG (MILLIGRAM),THERAPY START DATE :ASKU,THERAPY END DATE :ASKU
  3. HYDROCORTISON?ACETAAT CREME 10MG/G / BRAND NAME NOT SPECIFIED [Suspect]
     Active Substance: HYDROCORTISONE ACETATE
     Indication: DERMATITIS ATOPIC
     Dosage: 1 DOSAGE FORMS DAILY;   AFFECTED FINGER TIP UNIT PER AFFECTED AREA?HYDROCORTISON?ACETAAT CREME 10MG/
     Dates: start: 2000, end: 20201001
  4. MOMETASON CREME 1MG/G / BRAND NAME NOT SPECIFIED [Suspect]
     Active Substance: MOMETASONE FUROATE
     Indication: DERMATITIS ATOPIC
     Dosage: 1 DOSAGE FORMS DAILY;   PRESCRIBED FTU PER AFFECTED AREA
     Dates: end: 20210224

REACTIONS (5)
  - Erythema [Recovering/Resolving]
  - Eczema [Recovering/Resolving]
  - Steroid withdrawal syndrome [Recovering/Resolving]
  - Skin exfoliation [Recovering/Resolving]
  - Skin burning sensation [Recovering/Resolving]

NARRATIVE: CASE EVENT DATE: 20200601
